FAERS Safety Report 8260237-0 (Version None)
Quarter: 2012Q2

REPORT INFORMATION
  Report Type: 
  Country: None (occurrence: None)
  Receive Date: 20120404
  Receipt Date: 20120402
  Transmission Date: 20120825
  Serious: Yes (Hospitalization, Other)
  Sender: FDA-Public Use
  Company Number: US-TEVA-324653USA

PATIENT
  Sex: Female

DRUGS (3)
  1. AMITIZA [Concomitant]
  2. AZITHROMYCIN [Suspect]
     Indication: IMPAIRED GASTRIC EMPTYING
     Dosage: 200 MG/5 ML
     Route: 048
  3. HYOMAX SL [Concomitant]

REACTIONS (5)
  - THROAT TIGHTNESS [None]
  - DYSPHAGIA [None]
  - DYSGEUSIA [None]
  - THROAT IRRITATION [None]
  - HYPERSENSITIVITY [None]
